FAERS Safety Report 7644354-1 (Version None)
Quarter: 2011Q3

REPORT INFORMATION
  Report Type: 
  Country: None (occurrence: None)
  Receive Date: 20110729
  Receipt Date: 20110725
  Transmission Date: 20111222
  Serious: Yes (Death, Hospitalization, Other)
  Sender: FDA-Public Use
  Company Number: US-ELI_LILLY_AND_COMPANY-US201002003700

PATIENT
  Sex: Female
  Weight: 93.878 kg

DRUGS (4)
  1. METFORMIN HCL [Concomitant]
     Dosage: 750 MG, BID
  2. BYETTA [Suspect]
     Dosage: 5 UG, BID
     Dates: start: 20080701
  3. ALBUTEROL SULFATE AUTOHALER [Concomitant]
  4. BYETTA [Suspect]
     Dosage: 10 UG, BID
     Dates: start: 20080901, end: 20090201

REACTIONS (1)
  - PANCREATIC CARCINOMA [None]
